FAERS Safety Report 21641056 (Version 1)
Quarter: 2022Q4

REPORT INFORMATION
  Report Type: Report from Study
  Country: US (occurrence: US)
  Receive Date: 20221125
  Receipt Date: 20221125
  Transmission Date: 20230112
  Serious: No
  Sender: FDA-Public Use
  Company Number: US-ACADIA PHARMACEUTICALS INC.-ACA-2022-PIM-003802

PATIENT
  Age: 80 Year
  Sex: Male

DRUGS (27)
  1. NUPLAZID [Suspect]
     Active Substance: PIMAVANSERIN TARTRATE
     Indication: Parkinson^s disease psychosis
     Dosage: 34 MILLIGRAM, QD
     Route: 048
     Dates: start: 20221013, end: 20221017
  2. NUPLAZID [Suspect]
     Active Substance: PIMAVANSERIN TARTRATE
     Indication: Parkinson^s disease
  3. AMMONIUM LACTATE [Concomitant]
     Active Substance: AMMONIUM LACTATE
     Dosage: 12 PERCENT TOPICAL LOTION, APPLY ON AFFECTED AREA AFTER A SHOWER
  4. ATORVASTATIN [Concomitant]
     Active Substance: ATORVASTATIN
     Dosage: 20 MILLIGRAM, QD AT BEDTIME FOR 90 DAYS
     Route: 048
  5. AZELASTINE [Concomitant]
     Active Substance: AZELASTINE
     Dosage: 137 MICROGRAM BID, 2 SPRAYS IN EACH NOSTRIL
     Route: 045
  6. CALCIUM CITRATE\CHOLECALCIFEROL [Concomitant]
     Active Substance: CALCIUM CITRATE\CHOLECALCIFEROL
  7. CLONAZEPAM [Concomitant]
     Active Substance: CLONAZEPAM
     Dosage: 1 MILLIGRAM, PRN AT BEDTIME FOR 30 DAYS
     Route: 048
  8. CLONIDINE HYDROCHLORIDE [Concomitant]
     Active Substance: CLONIDINE HYDROCHLORIDE
     Indication: Blood pressure abnormal
     Dosage: 0.1 MG BID
     Route: 048
  9. DESONIDE [Concomitant]
     Active Substance: DESONIDE
     Dosage: 0.05 PERCENT, APPLY ON AFFECTED AREA BID
     Route: 061
  10. DICLOFENAC [Concomitant]
     Active Substance: DICLOFENAC
     Dosage: 2 GRAM, PRN TO AFFECTED AREA
     Route: 061
  11. DOCUSATE SODIUM [Concomitant]
     Active Substance: DOCUSATE SODIUM
     Dosage: 100 MILLIGRAM, BID FOR 90 DAYS
     Route: 048
  12. FLUTICASONE PROPIONATE [Concomitant]
     Active Substance: FLUTICASONE PROPIONATE
     Dosage: 50 MICROGRAM, QD 2 SPRAYS FOR 90 DAYS
     Route: 045
  13. FUROSEMIDE [Concomitant]
     Active Substance: FUROSEMIDE
     Dosage: 20 MILLIGRAM, QD FOR 90 DAYS
     Route: 048
  14. GABAPENTIN [Concomitant]
     Active Substance: GABAPENTIN
     Dosage: 100 MILLIGRAM, TID FOR 90 DAYS
     Route: 048
  15. KETOCONAZOLE [Concomitant]
     Active Substance: KETOCONAZOLE
     Dosage: 2 PERCENT
  16. KETOCONAZOLE [Concomitant]
     Active Substance: KETOCONAZOLE
     Indication: Dermatitis
     Dosage: 2 PERCENT, APPLY ON GROIN TWICE DAILY FOR 2 WEEKS AS NEEDED FOR FLARES
     Route: 061
  17. LUBIPROSTONE [Concomitant]
     Active Substance: LUBIPROSTONE
     Dosage: 24 MICROGRAM, BID FOR 90 DAYS
     Route: 048
  18. CANNABIS SATIVA SUBSP. INDICA TOP [Concomitant]
     Active Substance: CANNABIS SATIVA SUBSP. INDICA TOP
  19. OMEPRAZOLE [Concomitant]
     Active Substance: OMEPRAZOLE
     Dosage: 40 MILLIGRAM, QD
     Route: 048
  20. POLYETHYLENE GLYCOL 3350 [Concomitant]
     Active Substance: POLYETHYLENE GLYCOL 3350
     Dosage: 17 GRAM, QD
     Route: 048
  21. RYTARY [Concomitant]
     Active Substance: CARBIDOPA\LEVODOPA
     Dosage: 48.75 MG-195 MG, TAKE 2 CAPSULES 3 TIMES A DAY FOR 90 DAYS
     Route: 048
  22. TIMOLOL MALEATE [Concomitant]
     Active Substance: TIMOLOL MALEATE
     Dosage: 0.25 PERCENT
  23. TIMOLOL MALEATE [Concomitant]
     Active Substance: TIMOLOL MALEATE
     Dosage: 0.5 PERCENT, INSTILL 1 DROP ONCE IN THE MORNING IN BOTH EYES
  24. DEXAMETHASONE\TOBRAMYCIN [Concomitant]
     Active Substance: DEXAMETHASONE\TOBRAMYCIN
     Dosage: INSTILL 1 DROP INTO EACH EYE 4 TIMES DAILY FOR 5 TO 7 DAYS
  25. TOLTERODINE [Concomitant]
     Active Substance: TOLTERODINE
     Dosage: 4 MILLIGRAM, QD FOR 90 DAYS
     Route: 048
  26. TRIAMCINOLONE ACETONIDE [Concomitant]
     Active Substance: TRIAMCINOLONE ACETONIDE
     Dosage: 0.1 PERCENT
     Route: 061
  27. TYLENOL [Concomitant]
     Active Substance: ACETAMINOPHEN

REACTIONS (1)
  - Diarrhoea [Recovered/Resolved]

NARRATIVE: CASE EVENT DATE: 20221013
